FAERS Safety Report 5992906-7 (Version None)
Quarter: 2008Q4

REPORT INFORMATION
  Report Type: 
  Country: None (occurrence: None)
  Receive Date: 20081212
  Receipt Date: 20081203
  Transmission Date: 20090506
  Serious: Yes (Other)
  Sender: FDA-Public Use
  Company Number: GB-RANBAXY-2008RR-19728

PATIENT
  Age: 56 Year
  Sex: Male
  Weight: 76 kg

DRUGS (5)
  1. CODEINE SUL TAB [Suspect]
     Indication: ANALGESIA
     Dosage: 60 MG, QID
     Route: 048
     Dates: start: 20081029, end: 20081031
  2. HYDROCORTISONE [Concomitant]
     Indication: POSTOPERATIVE CARE
     Dosage: 30 MG, UNK
     Route: 048
     Dates: start: 20081022
  3. RANITIDINE [Concomitant]
     Indication: PROPHYLAXIS
     Dosage: 150 MG, BID
     Route: 048
  4. SIMVASTATIN [Concomitant]
     Indication: BLOOD CHOLESTEROL INCREASED
     Dosage: 40 MG, QD
     Route: 048
     Dates: start: 20080701
  5. TAMSULOSIN HCL [Concomitant]
     Indication: BLADDER DISORDER
     Dosage: 400 UG, QD
     Route: 048
     Dates: start: 20000101

REACTIONS (1)
  - HALLUCINATION, VISUAL [None]
